FAERS Safety Report 21926515 (Version 1)
Quarter: 2023Q1

REPORT INFORMATION
  Report Type: Spontaneous
  Country: ES (occurrence: ES)
  Receive Date: 20230130
  Receipt Date: 20230130
  Transmission Date: 20230418
  Serious: Yes (Other)
  Sender: FDA-Public Use
  Company Number: None

PATIENT
  Age: 89 Year
  Sex: Male

DRUGS (7)
  1. FUROSEMIDE [Suspect]
     Active Substance: FUROSEMIDE
     Indication: Cardiac failure congestive
     Dosage: 40 MILLIGRAM, QD
     Route: 048
     Dates: start: 20210302, end: 20210325
  2. SINTROM [Concomitant]
     Active Substance: ACENOCOUMAROL
     Dosage: UNK, 20 TABLETS
     Route: 048
     Dates: start: 20131022
  3. ULUNAR [Concomitant]
     Dosage: 1 DOSAGE FORM, QD
     Route: 045
     Dates: start: 20161102
  4. ANGIODROX [Concomitant]
     Dosage: 90 MILLIGRAM, 60 CAPSULE
     Route: 048
     Dates: start: 20210203
  5. SEREVENT DISKUS [Concomitant]
     Active Substance: SALMETEROL XINAFOATE
     Dosage: 50 MICROGRAM, 1 INHALER OF 120 DOSES
     Route: 045
     Dates: start: 20120403
  6. Trinomia [Concomitant]
     Dosage: 1 DOSAGE FORM, QD, 28 CAPSULES
     Route: 048
     Dates: start: 20210211
  7. DUTASTERIDE [Concomitant]
     Active Substance: DUTASTERIDE
     Dosage: 0.5 MILLIGRAM, QD, 30 CAPSULES
     Route: 048
     Dates: start: 20131018

REACTIONS (2)
  - Ototoxicity [Unknown]
  - Deafness [Unknown]

NARRATIVE: CASE EVENT DATE: 20210301
